FAERS Safety Report 10453191 (Version 5)
Quarter: 2015Q2

REPORT INFORMATION
  Report Type: Report from Study
  Country: US (occurrence: US)
  Receive Date: 20140915
  Receipt Date: 20150610
  Transmission Date: 20150821
  Serious: Yes (Other)
  Sender: FDA-Public Use
  Company Number: US-SA-2013SA095687

PATIENT
  Age: 68 Year
  Sex: Female
  Weight: 45.3 kg

DRUGS (20)
  1. MELOXICAM. [Concomitant]
     Active Substance: MELOXICAM
  2. DYMISTA [Concomitant]
     Active Substance: AZELASTINE HYDROCHLORIDE\FLUTICASONE PROPIONATE
     Indication: SINUS CONGESTION
  3. AUBAGIO [Suspect]
     Active Substance: TERIFLUNOMIDE
     Indication: MULTIPLE SCLEROSIS
     Route: 048
     Dates: start: 20130914, end: 20140115
  4. AUBAGIO [Suspect]
     Active Substance: TERIFLUNOMIDE
     Indication: RELAPSING-REMITTING MULTIPLE SCLEROSIS
     Route: 048
     Dates: start: 20141027
  5. BACLOFEN. [Concomitant]
     Active Substance: BACLOFEN
  6. ALENDRONATE [Concomitant]
     Active Substance: ALENDRONATE SODIUM
     Indication: BONE LOSS
     Dates: start: 2011
  7. CILOSTAZOL. [Concomitant]
     Active Substance: CILOSTAZOL
  8. VITAMIN D [Concomitant]
     Active Substance: CHOLECALCIFEROL
     Indication: BONE LOSS
     Dates: start: 20121101
  9. PREDNISONE. [Concomitant]
     Active Substance: PREDNISONE
  10. AUBAGIO [Suspect]
     Active Substance: TERIFLUNOMIDE
     Indication: MULTIPLE SCLEROSIS
     Route: 048
     Dates: start: 20130914, end: 20140115
  11. AUBAGIO [Suspect]
     Active Substance: TERIFLUNOMIDE
     Indication: RELAPSING-REMITTING MULTIPLE SCLEROSIS
     Route: 048
     Dates: start: 20130914, end: 20140115
  12. AUBAGIO [Suspect]
     Active Substance: TERIFLUNOMIDE
     Indication: RELAPSING-REMITTING MULTIPLE SCLEROSIS
     Route: 048
     Dates: start: 20130914, end: 20140115
  13. GABAPENTIN. [Concomitant]
     Active Substance: GABAPENTIN
     Indication: HEADACHE
     Dates: start: 20121101
  14. DYMISTA [Concomitant]
     Active Substance: AZELASTINE HYDROCHLORIDE\FLUTICASONE PROPIONATE
  15. NEURONTIN [Concomitant]
     Active Substance: GABAPENTIN
  16. ASPIRIN. [Concomitant]
     Active Substance: ASPIRIN
     Dates: start: 2011
  17. DYMISTA [Concomitant]
     Active Substance: AZELASTINE HYDROCHLORIDE\FLUTICASONE PROPIONATE
     Indication: HYPERSENSITIVITY
  18. AMITRIPTYLIN [Concomitant]
     Active Substance: AMITRIPTYLINE
     Dosage: 100 MG
  19. AUBAGIO [Suspect]
     Active Substance: TERIFLUNOMIDE
     Indication: MULTIPLE SCLEROSIS
     Route: 048
     Dates: start: 20141027
  20. PROTONIX [Concomitant]
     Active Substance: PANTOPRAZOLE SODIUM
     Dosage: 20 MG

REACTIONS (36)
  - Tachycardia [Unknown]
  - Sinusitis [Unknown]
  - Rhinorrhoea [Unknown]
  - Influenza [Unknown]
  - Choking sensation [Unknown]
  - Feeling of body temperature change [Unknown]
  - Road traffic accident [Unknown]
  - Peripheral swelling [Unknown]
  - Limb discomfort [Not Recovered/Not Resolved]
  - Blood cholesterol increased [Unknown]
  - Skin discolouration [Unknown]
  - Derealisation [Unknown]
  - Laceration [Unknown]
  - Rhinorrhoea [Not Recovered/Not Resolved]
  - Eye disorder [Unknown]
  - Respiratory tract infection [Not Recovered/Not Resolved]
  - Tremor [Unknown]
  - Chronic obstructive pulmonary disease [Unknown]
  - Weight increased [Unknown]
  - Sneezing [Unknown]
  - Sensation of foreign body [Unknown]
  - Weight decreased [Recovering/Resolving]
  - Hypersensitivity [Unknown]
  - Upper respiratory tract infection [Not Recovered/Not Resolved]
  - Back pain [Not Recovered/Not Resolved]
  - Musculoskeletal discomfort [Not Recovered/Not Resolved]
  - Head discomfort [Not Recovered/Not Resolved]
  - Gait disturbance [Recovering/Resolving]
  - Nasal congestion [Unknown]
  - Ear discomfort [Not Recovered/Not Resolved]
  - Pneumonia [Unknown]
  - Bronchitis [Unknown]
  - Candida infection [Unknown]
  - Cough [Not Recovered/Not Resolved]
  - Cough [Unknown]
  - Sleep disorder [Unknown]

NARRATIVE: CASE EVENT DATE: 2013
